FAERS Safety Report 9538865 (Version 2)
Quarter: 2013Q3

REPORT INFORMATION
  Report Type: Report from Study
  Country: KR (occurrence: KR)
  Receive Date: 20130920
  Receipt Date: 20130920
  Transmission Date: 20140515
  Serious: Yes (Hospitalization)
  Sender: FDA-Public Use
  Company Number: KR-MPIJNJ-2013-05159

PATIENT
  Sex: 0

DRUGS (12)
  1. VELCADE [Suspect]
     Indication: PLASMA CELL MYELOMA
     Dosage: 2.3 MG, UNK
     Route: 058
     Dates: start: 20130520, end: 20130620
  2. CYCLOPHOSPHAMIDE [Suspect]
     Indication: PLASMA CELL MYELOMA
     Dosage: 525 MG, UNK
     Route: 065
     Dates: start: 20130520, end: 20130624
  3. DEXAMETHASONE [Suspect]
     Indication: PLASMA CELL MYELOMA
     Dosage: 20 MG, UNK
     Route: 065
     Dates: start: 20130520, end: 20130531
  4. PLATELETS, CONCENTRATED [Concomitant]
     Indication: THROMBOCYTOPENIA
     Dosage: UNK
     Dates: start: 20130624, end: 20130624
  5. CHLORPHENIRAMINE MALEATE [Concomitant]
     Indication: ALLERGY PROPHYLAXIS
     Dosage: UNK
     Dates: start: 20130624, end: 20130624
  6. CORTISOL                           /00028601/ [Concomitant]
     Indication: ALLERGY PROPHYLAXIS
     Dosage: UNK
     Dates: start: 20130624, end: 20130624
  7. MUCOSTA [Concomitant]
     Indication: PROPHYLAXIS
     Dosage: UNK
     Dates: start: 20130515
  8. PANTOLOC                           /01263201/ [Concomitant]
     Indication: PROPHYLAXIS
     Dosage: UNK
     Dates: start: 20130515
  9. ZOVIRAX                            /00587301/ [Concomitant]
     Indication: PROPHYLAXIS
     Dosage: UNK
     Dates: start: 20130521
  10. CRAVIT [Concomitant]
     Indication: PROPHYLAXIS
     Dosage: UNK
     Dates: start: 20130521
  11. LASIX                              /00032601/ [Concomitant]
     Indication: PROPHYLAXIS
     Dosage: UNK
     Dates: start: 20130521
  12. ZYLORIC                            /00003301/ [Concomitant]
     Indication: BLOOD URIC ACID ABNORMAL
     Dosage: UNK
     Dates: start: 20130521

REACTIONS (1)
  - Hepatitis B [Unknown]
